FAERS Safety Report 4847501-X (Version None)
Quarter: 2005Q4

REPORT INFORMATION
  Report Type: 
  Country: None (occurrence: None)
  Receive Date: 20051207
  Receipt Date: 20051124
  Transmission Date: 20060501
  Serious: Yes (Hospitalization)
  Sender: FDA-Public Use
  Company Number: PHBS2005JP17440

PATIENT
  Age: 21 Year
  Sex: Female

DRUGS (4)
  1. GLEEVEC [Suspect]
     Indication: ACUTE LYMPHOCYTIC LEUKAEMIA
     Dosage: 300 MG/D
     Route: 048
     Dates: start: 20050101
  2. PROGRAF [Suspect]
     Route: 065
  3. CELLCEPT [Suspect]
     Route: 065
  4. DEPROMEL [Suspect]
     Route: 065

REACTIONS (3)
  - ASCITES [None]
  - DRUG INTERACTION [None]
  - PLEURAL EFFUSION [None]
